FAERS Safety Report 8357728-0 (Version None)
Quarter: 2012Q2

REPORT INFORMATION
  Report Type: 
  Country: None (occurrence: None)
  Receive Date: 20120514
  Receipt Date: 20120507
  Transmission Date: 20120825
  Serious: Yes (Other)
  Sender: FDA-Public Use
  Company Number: US-VERTEX PHARMACEUTICALS INC.-AE-2012-006589

PATIENT
  Sex: Male
  Weight: 98.518 kg

DRUGS (3)
  1. INCIVEK [Suspect]
     Indication: HEPATITIS C
     Route: 048
     Dates: start: 20120422, end: 20120504
  2. RIBAVIRIN [Concomitant]
     Indication: HEPATITIS C
     Route: 048
     Dates: start: 20120422, end: 20120504
  3. PEGASYS [Concomitant]
     Indication: HEPATITIS C
     Route: 058
     Dates: start: 20120422, end: 20120504

REACTIONS (5)
  - VOMITING [None]
  - DEHYDRATION [None]
  - ABDOMINAL PAIN UPPER [None]
  - DIARRHOEA [None]
  - WEIGHT DECREASED [None]
